FAERS Safety Report 8551961-0 (Version None)
Quarter: 2012Q3

REPORT INFORMATION
  Report Type: 
  Country: None (occurrence: None)
  Receive Date: 20120730
  Receipt Date: 20120725
  Transmission Date: 20120928
  Serious: No
  Sender: FDA-Public Use
  Company Number: US-BAYER-2012-076032

PATIENT
  Age: 71 Year
  Sex: Male
  Weight: 63 kg

DRUGS (5)
  1. LISINOPRIL [Concomitant]
  2. GLUCOPHAGE [Concomitant]
  3. TOPROL-XL [Concomitant]
  4. NAPROXEN (ALEVE) [Suspect]
     Indication: BACK PAIN
     Dosage: 1 DF, PRN
     Route: 048
  5. ZOCOR [Concomitant]

REACTIONS (1)
  - BACK PAIN [None]
